FAERS Safety Report 13398021 (Version 1)
Quarter: 2017Q2

REPORT INFORMATION
  Report Type: Spontaneous
  Country: TW (occurrence: TW)
  Receive Date: 20170403
  Receipt Date: 20170403
  Transmission Date: 20170830
  Serious: Yes (Hospitalization, Other)
  Sender: FDA-Public Use
  Company Number: TW-MYLANLABS-2017M1020552

PATIENT

DRUGS (3)
  1. EPINEPHRINE. [Suspect]
     Active Substance: EPINEPHRINE
     Indication: GASTRIC ULCER HAEMORRHAGE
     Dosage: 28ML OF 1:10000 DILUTED EPINEPHRINE
     Route: 050
  2. TACROLIMUS. [Concomitant]
     Active Substance: TACROLIMUS
     Indication: IMMUNOSUPPRESSANT DRUG THERAPY
     Route: 065
  3. EPINEPHRINE. [Suspect]
     Active Substance: EPINEPHRINE
     Dosage: 16ML OF DILUTED EPINEPHRINE
     Route: 050

REACTIONS (2)
  - Renal artery thrombosis [Unknown]
  - Renal transplant failure [Unknown]
